FAERS Safety Report 7993736-7 (Version None)
Quarter: 2011Q4

REPORT INFORMATION
  Report Type: 
  Country: None (occurrence: None)
  Receive Date: 20111220
  Receipt Date: 20111213
  Transmission Date: 20120403
  Serious: Yes (Hospitalization)
  Sender: FDA-Public Use
  Company Number: AR-BIOGENIDEC-2011BI044717

PATIENT
  Age: 31 Year
  Sex: Female

DRUGS (2)
  1. AVONEX [Suspect]
     Indication: MULTIPLE SCLEROSIS
     Route: 030
     Dates: start: 20110323
  2. DICLOFENAC [Concomitant]
     Dates: start: 20111101

REACTIONS (7)
  - PROCEDURAL HYPOTENSION [None]
  - HEART RATE INCREASED [None]
  - CHOLECYSTECTOMY [None]
  - PROCEDURAL PAIN [None]
  - HAEMATOCRIT DECREASED [None]
  - PALLOR [None]
  - RED BLOOD CELL COUNT DECREASED [None]
